FAERS Safety Report 8282704-6 (Version None)
Quarter: 2012Q2

REPORT INFORMATION
  Report Type: 
  Country: None (occurrence: None)
  Receive Date: 20120413
  Receipt Date: 20120404
  Transmission Date: 20120825
  Serious: Yes (Death, Other)
  Sender: FDA-Public Use
  Company Number: JP-ROCHE-780879

PATIENT
  Sex: Male
  Weight: 66 kg

DRUGS (11)
  1. ACTEMRA [Suspect]
     Dosage: ROUTE: INTRAVENOUS DRIP FORM: INJECTION
     Route: 042
     Dates: start: 20091209, end: 20100512
  2. PREDNISOLONE [Concomitant]
     Route: 041
  3. CYTOTEC [Concomitant]
     Route: 048
  4. PROGRAF [Concomitant]
     Route: 048
  5. PREDNISOLONE [Concomitant]
     Route: 048
  6. ACTEMRA [Suspect]
     Indication: RHEUMATOID ARTHRITIS
     Dosage: ROUTE: INTRAVENOUS DRIP FORM: INJECTION NOTE: 560-600 MG/4WEEKS
     Route: 041
     Dates: start: 20080514, end: 20091014
  7. FOLIAMIN [Concomitant]
     Route: 048
  8. VOLTAREN [Concomitant]
     Route: 048
  9. PREDNISOLONE [Concomitant]
     Route: 048
  10. URSO 250 [Concomitant]
     Route: 048
  11. PROGRAF [Concomitant]
     Route: 048
     Dates: start: 20080326, end: 20080805

REACTIONS (2)
  - INTERSTITIAL LUNG DISEASE [None]
  - ANKLE FRACTURE [None]
